FAERS Safety Report 12136618 (Version 1)
Quarter: 2016Q1

REPORT INFORMATION
  Report Type: Spontaneous
  Country: US (occurrence: None)
  Receive Date: 20160301
  Receipt Date: 20160301
  Transmission Date: 20160526
  Serious: Yes (Disabling, Other)
  Sender: FDA-Public Use
  Company Number: None

PATIENT
  Age: 71 Year
  Sex: Female
  Weight: 61.24 kg

DRUGS (8)
  1. VITAMINS [Concomitant]
     Active Substance: VITAMINS
  2. GARLIC. [Concomitant]
     Active Substance: GARLIC
  3. LECITHIN [Concomitant]
     Active Substance: LECITHIN
  4. RISEDRONATE [Suspect]
     Active Substance: RISEDRONATE SODIUM
     Indication: OSTEOPOROSIS
     Dates: start: 20160208
  5. SIMVASTATIN. [Concomitant]
     Active Substance: SIMVASTATIN
  6. LOW DOSE ASPRIN [Concomitant]
     Active Substance: ASPIRIN
  7. CALCIUM [Concomitant]
     Active Substance: CALCIUM
  8. JOINT MEDS [Concomitant]

REACTIONS (4)
  - Toothache [None]
  - Ear pain [None]
  - Headache [None]
  - Arthralgia [None]

NARRATIVE: CASE EVENT DATE: 20160125
